FAERS Safety Report 9644000 (Version 3)
Quarter: 2015Q1

REPORT INFORMATION
  Report Type: Spontaneous
  Country: AU (occurrence: None)
  Receive Date: 20131023
  Receipt Date: 20150106
  Transmission Date: 20150721
  Serious: Yes (Hospitalization)
  Sender: FDA-Public Use
  Company Number: 2013MPI00627

PATIENT
  Age: 79 Year
  Sex: Male
  Weight: 62.1 kg

DRUGS (4)
  1. DOXORUBICIN [Suspect]
     Active Substance: DOXORUBICIN
     Indication: HODGKIN^S DISEASE
     Dosage: 43 MG, QCYCLE, INTRAVENOUS
     Route: 042
     Dates: start: 20130727, end: 20130927
  2. DACARBAZINE. [Suspect]
     Active Substance: DACARBAZINE
     Indication: HODGKIN^S DISEASE
     Dosage: 640.8 MG, QCYCLE, INTRAVENOUS
     Route: 042
     Dates: start: 20130726, end: 20130927
  3. BRENTUXIMAB VEDOTIN [Suspect]
     Active Substance: BRENTUXIMAB VEDOTIN
     Indication: HODGKIN^S DISEASE
     Dosage: 55 MG, QCYCLE, INTRAVENOUS
     Route: 042
     Dates: start: 20130726, end: 20130927
  4. VINBLASTINE [Suspect]
     Active Substance: VINBLASTINE
     Indication: HODGKIN^S DISEASE
     Dosage: 10 MG, QCYCLE, INTRAVENOUS
     Route: 042
     Dates: start: 20130726, end: 20130927

REACTIONS (7)
  - Diarrhoea [None]
  - Anaemia [None]
  - Dehydration [None]
  - Febrile neutropenia [None]
  - Vomiting [None]
  - Hyperglycaemia [None]
  - Nausea [None]

NARRATIVE: CASE EVENT DATE: 20131005
